FAERS Safety Report 15178786 (Version 1)
Quarter: 2018Q3

REPORT INFORMATION
  Report Type: Spontaneous
  Country: DE (occurrence: DE)
  Receive Date: 20180722
  Receipt Date: 20180722
  Transmission Date: 20181010
  Serious: Yes (Hospitalization)
  Sender: FDA-Public Use
  Company Number: PHHY2018DE050179

PATIENT
  Age: 79 Year
  Sex: Male
  Weight: 84 kg

DRUGS (8)
  1. ETOPOSID EBEWE [Suspect]
     Active Substance: ETOPOSIDE
     Indication: PRODUCT USED FOR UNKNOWN INDICATION
     Dosage: 120 MG/M?, SCHEMA, INJEKTIONS?/INFUSIONSL?SUNG
     Route: 042
  2. CLEXANE [Concomitant]
     Active Substance: ENOXAPARIN SODIUM
     Indication: PRODUCT USED FOR UNKNOWN INDICATION
     Dosage: 8000 IE, 1?0?1?0, FERTIGSPRITZEN
     Route: 058
  3. XTANDI [Concomitant]
     Active Substance: ENZALUTAMIDE
     Indication: PRODUCT USED FOR UNKNOWN INDICATION
     Dosage: 160 MG, 1?0?0?0, KAPSELN
     Route: 048
  4. CARBOPLATIN. [Suspect]
     Active Substance: CARBOPLATIN
     Indication: PRODUCT USED FOR UNKNOWN INDICATION
     Dosage: 5 MG, SCHEMA, INJEKTIONS?/INFUSIONSL?SUNG
     Route: 042
  5. ONDANSETRON [Concomitant]
     Active Substance: ONDANSETRON
     Indication: PRODUCT USED FOR UNKNOWN INDICATION
     Dosage: 8 MG, BEDARF, TABLETTEN
     Route: 048
  6. FIRMAGON [Concomitant]
     Active Substance: DEGARELIX ACETATE
     Indication: PRODUCT USED FOR UNKNOWN INDICATION
     Dosage: NK MG, NK, INJEKTIONS?/INFUSIONSL?SUNG
     Route: 042
  7. L?THYROXINE [Concomitant]
     Active Substance: LEVOTHYROXINE
     Indication: PRODUCT USED FOR UNKNOWN INDICATION
     Dosage: 75 ?G, 1?0?0?0, TABLETTEN
     Route: 048
  8. METAMIZOL [Concomitant]
     Active Substance: METAMIZOLE SODIUM
     Indication: PRODUCT USED FOR UNKNOWN INDICATION
     Dosage: 1000 MG, 1?1?1?1, TABLETTEN
     Route: 048

REACTIONS (5)
  - Chest pain [Unknown]
  - Fatigue [Unknown]
  - Pyrexia [Unknown]
  - Dysuria [Unknown]
  - General physical health deterioration [Unknown]
